FAERS Safety Report 5408452-5 (Version None)
Quarter: 2007Q3

REPORT INFORMATION
  Report Type: 
  Country: None (occurrence: None)
  Receive Date: 20070808
  Receipt Date: 20070727
  Transmission Date: 20080115
  Serious: Yes (Hospitalization)
  Sender: FDA-Public Use
  Company Number: GB-ROCHE-509811

PATIENT
  Age: 66 Year
  Sex: Male
  Weight: 152.4 kg

DRUGS (1)
  1. XENICAL [Suspect]
     Indication: OBESITY
     Route: 048
     Dates: start: 20070523, end: 20070720

REACTIONS (2)
  - DYSPNOEA [None]
  - PULMONARY OEDEMA [None]
